FAERS Safety Report 4849210-X (Version None)
Quarter: 2005Q4

REPORT INFORMATION
  Report Type: 
  Country: None (occurrence: None)
  Receive Date: 20051209
  Receipt Date: 20050504
  Transmission Date: 20060501
  Serious: Yes (Hospitalization)
  Sender: FDA-Public Use
  Company Number: US-MERCK-0505USA00588

PATIENT
  Age: 67 Year
  Sex: Male
  Weight: 109 kg

DRUGS (1)
  1. VIOXX [Suspect]
     Indication: ARTHRALGIA
     Route: 048
     Dates: start: 20010125, end: 20010921

REACTIONS (7)
  - CEREBROVASCULAR ACCIDENT [None]
  - CHEST DISCOMFORT [None]
  - CHEST PAIN [None]
  - MYOCARDIAL INFARCTION [None]
  - ORGAN FAILURE [None]
  - PULMONARY EMBOLISM [None]
  - THROMBOSIS [None]
